FAERS Safety Report 10191878 (Version 1)
Quarter: 2014Q2

REPORT INFORMATION
  Report Type: Spontaneous
  Country: US (occurrence: US)
  Receive Date: 20140523
  Receipt Date: 20140523
  Transmission Date: 20141212
  Serious: Yes (Death, Hospitalization)
  Sender: FDA-Public Use
  Company Number: US-GLAXOSMITHKLINE-A1073686A

PATIENT
  Age: 83 Year
  Sex: Female

DRUGS (10)
  1. ADVAIR HFA [Suspect]
     Indication: CHRONIC OBSTRUCTIVE PULMONARY DISEASE
     Dosage: 2PUFF TWICE PER DAY
     Route: 055
     Dates: start: 2010
  2. VENTOLIN [Suspect]
     Indication: CHRONIC OBSTRUCTIVE PULMONARY DISEASE
     Dosage: 2PUFF TWICE PER DAY
     Route: 055
     Dates: start: 2010
  3. DIGOXIN [Concomitant]
  4. METOPROLOL [Concomitant]
  5. FUROSEMIDE [Concomitant]
  6. WARFARIN [Concomitant]
  7. CITALOPRAM [Concomitant]
  8. ESTRADIOL [Concomitant]
  9. METFORMIN [Concomitant]
  10. METOLAZONE [Concomitant]

REACTIONS (4)
  - Death [Fatal]
  - Investigation [Recovered/Resolved]
  - Hospice care [Recovered/Resolved]
  - Incorrect dose administered [Unknown]
